FAERS Safety Report 7631045-6 (Version None)
Quarter: 2011Q3

REPORT INFORMATION
  Report Type: 
  Country: None (occurrence: None)
  Receive Date: 20110725
  Receipt Date: 20110720
  Transmission Date: 20111222
  Serious: Yes (Hospitalization)
  Sender: FDA-Public Use
  Company Number: AT-BRISTOL-MYERS SQUIBB COMPANY-15913734

PATIENT
  Age: 43 Year
  Sex: Male

DRUGS (2)
  1. FRAGMIN [Concomitant]
     Dates: start: 20100804
  2. IPILIMUMAB [Suspect]
     Indication: MALIGNANT MELANOMA
     Dosage: VIAL # 260653,260654,260655,264176,264177,264178
     Dates: start: 20110711

REACTIONS (2)
  - DYSAESTHESIA [None]
  - METASTASES TO MENINGES [None]
